FAERS Safety Report 13494458 (Version 2)
Quarter: 2017Q3

REPORT INFORMATION
  Report Type: Report from Study
  Country: None (occurrence: US)
  Receive Date: 20170428
  Receipt Date: 20170719
  Transmission Date: 20171127
  Serious: Yes (Hospitalization, Other)
  Sender: FDA-Public Use
  Company Number: US-ABBVIE-17K-163-1953148-00

PATIENT
  Age: 60 Year
  Sex: Female

DRUGS (1)
  1. HUMIRA [Suspect]
     Active Substance: ADALIMUMAB
     Indication: RHEUMATOID ARTHRITIS
     Route: 058
     Dates: start: 201603, end: 201703

REACTIONS (11)
  - Gastroenteritis viral [Recovered/Resolved]
  - Rheumatoid arthritis [Unknown]
  - Hypertension [Not Recovered/Not Resolved]
  - Dehydration [Recovered/Resolved]
  - Joint swelling [Recovering/Resolving]
  - Dyspnoea [Not Recovered/Not Resolved]
  - Renal impairment [Recovering/Resolving]
  - Kidney infection [Recovering/Resolving]
  - Heart rate increased [Not Recovered/Not Resolved]
  - Heart rate decreased [Unknown]
  - Left ventricular failure [Recovering/Resolving]

NARRATIVE: CASE EVENT DATE: 2017
